FAERS Safety Report 17088788 (Version 2)
Quarter: 2020Q2

REPORT INFORMATION
  Report Type: Report from Study
  Country: US (occurrence: US)
  Receive Date: 20191128
  Receipt Date: 20200518
  Transmission Date: 20200713
  Serious: No
  Sender: FDA-Public Use
  Company Number: PHHY2019US017238

PATIENT
  Age: 64 Year
  Sex: Female

DRUGS (1)
  1. GILENYA [Suspect]
     Active Substance: FINGOLIMOD HYDROCHLORIDE
     Indication: MULTIPLE SCLEROSIS
     Dosage: UNK, QD
     Route: 048

REACTIONS (7)
  - Seborrhoeic keratosis [Unknown]
  - Melanocytic naevus [Unknown]
  - Solar lentigo [Unknown]
  - Actinic keratosis [Unknown]
  - Bronchitis [Not Recovered/Not Resolved]
  - Haemangioma of skin [Unknown]
  - Neoplasm skin [Recovering/Resolving]

NARRATIVE: CASE EVENT DATE: 20180201
